FAERS Safety Report 4385407-3 (Version None)
Quarter: 2004Q2

REPORT INFORMATION
  Report Type: 
  Country: None (occurrence: None)
  Receive Date: 20040622
  Receipt Date: 20040609
  Transmission Date: 20050107
  Serious: Yes (Hospitalization, Other)
  Sender: FDA-Public Use
  Company Number: 2004038701

PATIENT
  Age: 75 Year
  Sex: Female

DRUGS (1)
  1. ZOLOFT [Suspect]
     Indication: ILL-DEFINED DISORDER

REACTIONS (4)
  - DEMENTIA ALZHEIMER'S TYPE [None]
  - ECONOMIC PROBLEM [None]
  - FALL [None]
  - SPINAL CORD INJURY [None]
